FAERS Safety Report 9533083 (Version 4)
Quarter: 2013Q4

REPORT INFORMATION
  Report Type: Spontaneous
  Country: AT (occurrence: AT)
  Receive Date: 20130918
  Receipt Date: 20131004
  Transmission Date: 20140711
  Serious: Yes (Life-Threatening, Hospitalization, Other)
  Sender: FDA-Public Use
  Company Number: AT-ASTRAZENECA-2013SE69551

PATIENT
  Age: 25721 Day
  Sex: Male
  Weight: 89 kg

DRUGS (7)
  1. CASODEX [Suspect]
     Indication: HORMONE THERAPY
     Route: 048
     Dates: start: 2013
  2. CASODEX [Interacting]
     Indication: HORMONE THERAPY
     Dosage: GENERIC
     Route: 065
     Dates: start: 201306
  3. ACECOMB [Interacting]
     Indication: HYPERTENSION
     Dosage: 20 MG, DAILY
     Route: 048
  4. ACEMIN [Interacting]
     Indication: HYPERTENSION
     Dates: start: 2005, end: 20130914
  5. AERIUS [Interacting]
     Indication: SEASONAL ALLERGY
     Dosage: TWO WEEKS, DAILY
  6. LISTERINE [Interacting]
     Dosage: DAILY
  7. CONCOR [Interacting]
     Indication: HYPERTENSION
     Route: 065

REACTIONS (3)
  - Drug interaction [Unknown]
  - Joint injury [Unknown]
  - Anaphylactic shock [Recovered/Resolved with Sequelae]
